FAERS Safety Report 5085780-7 (Version None)
Quarter: 2006Q3

REPORT INFORMATION
  Report Type: 
  Country: None (occurrence: None)
  Receive Date: 20060816
  Receipt Date: 20060804
  Transmission Date: 20061208
  Serious: Yes (Hospitalization)
  Sender: FDA-Public Use
  Company Number: 225672

PATIENT
  Age: 68 Year
  Sex: Male

DRUGS (4)
  1. MABTHERA (RITUXIMAB) CONC FOR SOLUTION FOR INFUSION [Suspect]
     Indication: RHEUMATOID ARTHRITIS
     Dosage: 1000 MG, Q 15 DAYS, INTRAVENOUS
     Route: 042
     Dates: start: 20060124, end: 20060213
  2. METHOTREXATE [Suspect]
     Indication: RHEUMATOID ARTHRITIS
     Dosage: 10 MG, 1/WEEK, INTRAMUSCULAR
     Route: 030
     Dates: start: 20050901, end: 20060424
  3. PLAQUENIL [Concomitant]
  4. PREDNISONE TAB [Concomitant]

REACTIONS (2)
  - ANAEMIA [None]
  - NON-HODGKIN'S LYMPHOMA [None]
